FAERS Safety Report 5236234-6 (Version None)
Quarter: 2007Q1

REPORT INFORMATION
  Report Type: 
  Country: None (occurrence: None)
  Receive Date: 20070212
  Receipt Date: 20070131
  Transmission Date: 20070707
  Serious: Yes (Life-Threatening, Hospitalization)
  Sender: FDA-Public Use
  Company Number: MY-PFIZER INC-2007004257

PATIENT
  Sex: Male
  Weight: 47.2 kg

DRUGS (7)
  1. SU-011,248 [Suspect]
     Indication: METASTATIC RENAL CELL CARCINOMA
     Route: 048
     Dates: start: 20061128, end: 20061225
  2. ALLOPURINOL SODIUM [Concomitant]
     Route: 048
  3. MORPHINE [Concomitant]
     Route: 048
     Dates: start: 20060407
  4. COLCHICINE [Concomitant]
     Route: 048
     Dates: start: 20060524
  5. RANITIDINE [Concomitant]
     Route: 048
     Dates: start: 20060605
  6. BENZYDAMINE [Concomitant]
     Route: 061
     Dates: start: 20060516
  7. XYLOCAINE [Concomitant]
     Route: 061
     Dates: start: 20060516

REACTIONS (1)
  - SEPTIC SHOCK [None]
